FAERS Safety Report 16330132 (Version 1)
Quarter: 2019Q2

REPORT INFORMATION
  Report Type: Spontaneous
  Country: JP (occurrence: JP)
  Receive Date: 20190520
  Receipt Date: 20190520
  Transmission Date: 20190711
  Serious: Yes (Death, Life-Threatening)
  Sender: FDA-Public Use
  Company Number: JP-HBP-2019JP018933

PATIENT
  Age: 63 Year
  Sex: Male
  Weight: 44.3 kg

DRUGS (29)
  1. ABRAXANE [Suspect]
     Active Substance: PACLITAXEL
     Indication: PANCREATIC CARCINOMA
     Dosage: 100 MILLIGRAM
     Route: 041
     Dates: start: 20190218, end: 20190318
  2. OMNIPAQUE [Suspect]
     Active Substance: IOHEXOL
     Dosage: 47 MILLILITER
     Route: 041
     Dates: start: 20190213, end: 20190213
  3. OMNIPAQUE [Suspect]
     Active Substance: IOHEXOL
     Dosage: 88 MILLILITER
     Route: 041
     Dates: start: 20190415, end: 20190415
  4. EMEND [Suspect]
     Active Substance: APREPITANT
     Dosage: 80 MILLIGRAM
     Route: 048
     Dates: start: 20190304, end: 20190306
  5. GRAN [Concomitant]
     Active Substance: FILGRASTIM
     Indication: FEBRILE NEUTROPENIA
     Dosage: 150 MICROGRAM, QD
     Dates: start: 20190321
  6. BOSMIN                             /00003901/ [Concomitant]
     Active Substance: EPINEPHRINE
     Indication: CARDIAC ARREST
     Dosage: 2 MILLIGRAM, QD
     Dates: start: 20190418
  7. ALOXI [Suspect]
     Active Substance: PALONOSETRON HYDROCHLORIDE
     Indication: PROPHYLAXIS OF NAUSEA AND VOMITING
     Dosage: 1 DOSAGE FORM
     Route: 041
     Dates: start: 20190218, end: 20190318
  8. CELECOX [Concomitant]
     Active Substance: CELECOXIB
     Indication: BACK PAIN
     Dosage: 400 MILLIGRAM, QD
     Route: 048
     Dates: start: 20190205, end: 20190320
  9. OMNIPAQUE [Suspect]
     Active Substance: IOHEXOL
     Indication: IMAGING PROCEDURE
     Dosage: 88 MILLILITER
     Route: 041
     Dates: start: 20190121, end: 20190121
  10. EMEND [Suspect]
     Active Substance: APREPITANT
     Dosage: 80 MILLIGRAM
     Route: 048
     Dates: start: 20190318, end: 20190320
  11. METOCLOPRAMIDE. [Concomitant]
     Active Substance: METOCLOPRAMIDE
     Indication: NAUSEA
     Dosage: 10 MILLIGRAM
     Dates: start: 20190322, end: 20190323
  12. MUCOSTA [Concomitant]
     Active Substance: REBAMIPIDE
     Indication: GASTRITIS PROPHYLAXIS
     Dosage: 200 MILLIGRAM, QD
     Route: 048
     Dates: start: 20190205, end: 20190320
  13. GASTER [Concomitant]
     Active Substance: FAMOTIDINE
     Indication: ABDOMINAL PAIN UPPER
     Dosage: 40 MILLIGRAM, QD
     Route: 048
     Dates: start: 20190220, end: 20190320
  14. MAGMITT [Concomitant]
     Active Substance: MAGNESIUM OXIDE
     Indication: CONSTIPATION
     Dosage: 990 MILLIGRAM, QD
     Route: 048
     Dates: start: 20190221, end: 20190226
  15. DANTRIUM [Concomitant]
     Active Substance: DANTROLENE SODIUM
     Dosage: 40 MILLIGRAM
     Dates: start: 20190325, end: 20190418
  16. RECOMODULIN [Concomitant]
     Active Substance: THROMBOMODULIN ALFA
     Indication: DISSEMINATED INTRAVASCULAR COAGULATION
     Dosage: 12800 INTERNATIONAL UNIT, QD
     Dates: start: 20190328, end: 20190330
  17. GEMZAR [Suspect]
     Active Substance: GEMCITABINE HYDROCHLORIDE
     Indication: PANCREATIC CARCINOMA
     Dosage: 1000 MILLIGRAM
     Route: 041
     Dates: start: 20190218, end: 20190318
  18. MIYA-BM [Concomitant]
     Active Substance: CLOSTRIDIUM BUTYRICUM SPORES STRAIN M-55
     Indication: CONSTIPATION
     Dosage: 3 GRAM, QD
     Route: 048
     Dates: start: 20190305, end: 20190320
  19. ZOSYN [Concomitant]
     Active Substance: PIPERACILLIN SODIUM\TAZOBACTAM SODIUM
     Indication: FEBRILE NEUTROPENIA
     Dosage: 9 GRAM, QD
     Dates: start: 20190321
  20. EMEND [Suspect]
     Active Substance: APREPITANT
     Indication: PROPHYLAXIS OF NAUSEA AND VOMITING
     Dosage: 125 MILLIGRAM
     Route: 048
     Dates: start: 20190216, end: 20190218
  21. ALBUMIN [Concomitant]
     Active Substance: ALBUMIN HUMAN
     Indication: CIRCULATORY COLLAPSE
     Dosage: 100 MILLILITER, QD
     Dates: start: 20190418
  22. NORADRENALINE                      /00127501/ [Concomitant]
     Active Substance: NOREPINEPHRINE
     Indication: CIRCULATORY COLLAPSE
     Dosage: 5 MILLIGRAM, QD
     Dates: start: 20190418
  23. DECADRON [Concomitant]
     Active Substance: DEXAMETHASONE
     Indication: PROPHYLAXIS
     Dosage: 6.6 MILLIGRAM, QD
     Route: 041
     Dates: start: 20190218, end: 20190318
  24. VENOGLOBULIN IH [Concomitant]
     Active Substance: HUMAN IMMUNOGLOBULIN G
     Indication: FEBRILE NEUTROPENIA
     Dosage: 5 GRAM, QD
     Dates: start: 20190321
  25. LASIX [Concomitant]
     Active Substance: FUROSEMIDE
     Indication: OLIGURIA
     Dosage: 10 MILLIGRAM, QD
     Dates: start: 20190322
  26. OMNIPAQUE [Suspect]
     Active Substance: IOHEXOL
     Dosage: 88 MILLILITER
     Route: 041
     Dates: start: 20190312, end: 20190312
  27. FUTHAN [Concomitant]
     Active Substance: NAFAMOSTAT MESYLATE
     Indication: PANCREATITIS
     Dosage: 20 MILLIGRAM, QD
     Route: 041
     Dates: start: 20190215, end: 20190228
  28. FERROMIA [Concomitant]
     Active Substance: SODIUM FERROUS CITRATE
     Indication: ANAEMIA
     Dosage: 100 MILLIGRAM, QD
     Route: 048
     Dates: start: 20190319, end: 20190320
  29. OMEPRAL                            /00661201/ [Concomitant]
     Active Substance: OMEPRAZOLE
     Dosage: 2 DOSAGE FORM, QD
     Route: 041
     Dates: start: 20190225, end: 20190228

REACTIONS (1)
  - Neuroleptic malignant syndrome [Fatal]

NARRATIVE: CASE EVENT DATE: 20190324
